FAERS Safety Report 13882571 (Version 4)
Quarter: 2018Q3

REPORT INFORMATION
  Report Type: Report from Study
  Country: US (occurrence: US)
  Receive Date: 20170818
  Receipt Date: 20180725
  Transmission Date: 20181010
  Serious: Yes (Other)
  Sender: FDA-Public Use
  Company Number: US-VERTEX PHARMACEUTICALS-2017-004357

PATIENT
  Age: 41 Year
  Sex: Female

DRUGS (17)
  1. LINZESS [Concomitant]
     Active Substance: LINACLOTIDE
     Dosage: 1 DF, QD
     Route: 048
     Dates: start: 20150717
  2. TOBI [Concomitant]
     Active Substance: TOBRAMYCIN
     Dosage: 1 DF, BID
     Dates: start: 20080917
  3. COLACE [Concomitant]
     Active Substance: DOCUSATE SODIUM
     Indication: CONSTIPATION
     Dosage: 100 MG, QD
     Route: 048
  4. NASACORT AQ [Concomitant]
     Active Substance: TRIAMCINOLONE ACETONIDE
     Dosage: 2 DF, BID
     Route: 055
     Dates: start: 20150302
  5. MIRALAX [Concomitant]
     Active Substance: POLYETHYLENE GLYCOL 3350
  6. VX?661/VX?770 [Suspect]
     Active Substance: IVACAFTOR\TEZACAFTOR
     Indication: CYSTIC FIBROSIS
     Dosage: UNK
     Route: 048
     Dates: start: 20160616, end: 20170808
  7. OMEPRAZOLE. [Concomitant]
     Active Substance: OMEPRAZOLE
     Dosage: 1 DF, BID
     Route: 048
     Dates: start: 20100201
  8. WELLBUTRIN XL [Concomitant]
     Active Substance: BUPROPION HYDROCHLORIDE
     Dosage: 1 DF, QD
     Route: 048
     Dates: start: 20161207
  9. ALBUTEROL SULFATE. [Concomitant]
     Active Substance: ALBUTEROL SULFATE
     Indication: CYSTIC FIBROSIS LUNG
     Dosage: 1 VIAL, QID
     Route: 055
     Dates: start: 20091020
  10. VENTOLIN HFA [Concomitant]
     Active Substance: ALBUTEROL SULFATE
     Dosage: 2 DF, TID
     Route: 055
     Dates: start: 20101123
  11. NASONEX [Concomitant]
     Active Substance: MOMETASONE FUROATE
  12. NORTRIPTYLINE [Concomitant]
     Active Substance: NORTRIPTYLINE
     Dosage: 10 MG, UNK
     Route: 048
     Dates: start: 20160823
  13. VITAMIN D3 [Concomitant]
     Active Substance: CHOLECALCIFEROL
     Dosage: 1 DF, BID
     Route: 048
     Dates: start: 20161214
  14. BETHKIS [Concomitant]
     Active Substance: TOBRAMYCIN
     Indication: CYSTIC FIBROSIS LUNG
     Dosage: 1 VIAL, BID FOR 28 DAYS
     Route: 055
     Dates: start: 20160519
  15. CELEXA [Concomitant]
     Active Substance: CITALOPRAM HYDROBROMIDE
     Indication: CYSTIC FIBROSIS LUNG
     Dosage: 20 MG, QD
     Route: 048
     Dates: start: 20161207
  16. ADEK [Concomitant]
     Indication: NUTRITIONAL SUPPLEMENTATION
     Dosage: 1 DF, QD
     Route: 048
  17. PULMOZYME [Concomitant]
     Active Substance: DORNASE ALFA
     Dosage: 1 DF, QD
     Route: 055
     Dates: start: 20120124

REACTIONS (1)
  - Blood creatine phosphokinase increased [Recovered/Resolved]

NARRATIVE: CASE EVENT DATE: 20170808
